FAERS Safety Report 5763447-7 (Version None)
Quarter: 2008Q2

REPORT INFORMATION
  Report Type: 
  Country: None (occurrence: None)
  Receive Date: 20080604
  Receipt Date: 20080604
  Transmission Date: 20081010
  Serious: Yes (Hospitalization)
  Sender: FDA-Public Use
  Company Number: None

PATIENT
  Sex: Male

DRUGS (2)
  1. PHENYTOIN EXTENDED RELEASE CAPSULE 100MG, CARACO [Suspect]
     Indication: EPILEPSY
     Dosage: 100MG 6 AT BEDTIME 047
     Dates: start: 20080103, end: 20080422
  2. LIPITOR [Concomitant]

REACTIONS (9)
  - ANTICONVULSANT DRUG LEVEL INCREASED [None]
  - ATAXIA [None]
  - FACIAL BONES FRACTURE [None]
  - FALL [None]
  - NAUSEA [None]
  - NERVOUS SYSTEM DISORDER [None]
  - PHARMACEUTICAL PRODUCT COMPLAINT [None]
  - VOMITING [None]
  - WHEELCHAIR USER [None]
